FAERS Safety Report 18557252 (Version 2)
Quarter: 2021Q4

REPORT INFORMATION
  Report Type: Spontaneous
  Country: US (occurrence: US)
  Receive Date: 20201129
  Receipt Date: 20211216
  Transmission Date: 20220303
  Serious: No
  Sender: FDA-Public Use
  Company Number: US-PURDUE PHARMA-USA-2020-0151936

PATIENT
  Sex: Male
  Weight: 97.506 kg

DRUGS (2)
  1. HYDROCODONE BITARTRATE [Suspect]
     Active Substance: HYDROCODONE BITARTRATE
     Indication: Pain
     Dosage: UNK MG, [REPORTED AS 10/325]
     Route: 048
     Dates: end: 2015
  2. HYDROCODONE BITARTRATE [Suspect]
     Active Substance: HYDROCODONE BITARTRATE
     Dosage: 7.5/325 MG, UNK
     Route: 048

REACTIONS (13)
  - Drug dose titration not performed [Unknown]
  - Balance disorder [Unknown]
  - Weight increased [Unknown]
  - Concussion [Unknown]
  - Eye disorder [Not Recovered/Not Resolved]
  - Head injury [Recovered/Resolved]
  - Peripheral swelling [Unknown]
  - Fall [Recovered/Resolved]
  - Swelling [Unknown]
  - Pain [Not Recovered/Not Resolved]
  - Insomnia [Not Recovered/Not Resolved]
  - Anxiety [Not Recovered/Not Resolved]
  - Feeling abnormal [Not Recovered/Not Resolved]

NARRATIVE: CASE EVENT DATE: 20150101
